FAERS Safety Report 5260950-3 (Version None)
Quarter: 2007Q1

REPORT INFORMATION
  Report Type: 
  Country: None (occurrence: None)
  Receive Date: 20070309
  Receipt Date: 20070226
  Transmission Date: 20070707
  Serious: Yes (Hospitalization, Other)
  Sender: FDA-Public Use
  Company Number: BE-SHR-BE-2007-004351

PATIENT
  Age: 58 Year
  Sex: Male
  Weight: 82.8 kg

DRUGS (31)
  1. MAGNEVIST [Suspect]
     Dosage: UNK, 1 DOSE
     Dates: start: 20011128, end: 20011128
  2. MAGNEVIST [Suspect]
     Dosage: UNK, 1 DOSE
     Dates: start: 20011219, end: 20011219
  3. MAGNEVIST [Suspect]
     Dosage: UNK, 1 DOSE
     Dates: start: 20021216, end: 20021216
  4. MAGNEVIST [Suspect]
     Dosage: UNK, 1 DOSE
     Dates: start: 20030702, end: 20030702
  5. KAYEXALATE [Concomitant]
     Dosage: UNK, 3X/WEEK
  6. ROCALTROL [Concomitant]
     Dosage: 1 A?G, 2X/WEEK
  7. ROCALTROL [Concomitant]
     Dosage: .25 A?G, 2 CAPS 2X/WEEK
  8. GLURENORM [Concomitant]
     Dosage: 30 MG, 2X/DAY
  9. CORDARONE [Suspect]
     Dosage: 200 MG, 1X/DAY (NOT WEEKENDS)
  10. NEORAL SANDIMMUN [Concomitant]
     Dosage: 125 MG, 2X/DAY
  11. IRBESARTAN [Concomitant]
     Dosage: 75 MG, 1X/DAY
  12. DOMINAL [Concomitant]
     Dosage: 80 MG, 1X/DAY
  13. MEDROL [Concomitant]
     Dosage: 8 MG, 1X/DAY
  14. SINTROM [Concomitant]
     Dosage: UNK, AS REQ'D
  15. FRAXIPARIN [Concomitant]
     Dosage: .4 MG, UNK
  16. CALCIUM [Concomitant]
     Dosage: 2 G, 3X/DAY
  17. DIMITONE [Concomitant]
     Dosage: 6.25 UNK, 2X/DAY
  18. RIVOTRIL [Concomitant]
     Dosage: .5 MG, 1X/DAY
  19. CARDIOASPIRINE [Concomitant]
     Dosage: 100 MG, 1X/DAY
  20. CORUNO RETARD [Concomitant]
     Dosage: 16 MG, 1X/DAY
  21. KREDEX [Concomitant]
     Dosage: 25 MG, UNK
  22. PLAVIX [Concomitant]
     Dosage: 75 MG, 1X/DAY
  23. STEOCAR [Concomitant]
     Dosage: 3X2DD
  24. ZOCOR [Concomitant]
     Dosage: 20 MG, 1X/DAY
  25. DUOVENT [Concomitant]
     Dosage: 3X4 ML, 1X/DAY
  26. COZAAR [Concomitant]
     Dosage: 1 UNK, 1X/DAY
  27. EPOGEN [Concomitant]
  28. RENAGEL [Concomitant]
  29. CALCIUM CARBONATE [Concomitant]
  30. APOCARD [Concomitant]
  31. VITAMIN D [Concomitant]

REACTIONS (13)
  - BACK PAIN [None]
  - CARDIAC MURMUR [None]
  - CORONARY ARTERY OCCLUSION [None]
  - DYSPNOEA [None]
  - ELECTROCARDIOGRAM QT PROLONGED [None]
  - FATIGUE [None]
  - GASTRODUODENAL ULCER [None]
  - INTERMITTENT CLAUDICATION [None]
  - NEPHROGENIC FIBROSING DERMOPATHY [None]
  - OEDEMA PERIPHERAL [None]
  - ORTHOSTATIC HYPOTENSION [None]
  - PRURITUS [None]
  - VERTIGO POSITIONAL [None]
